FAERS Safety Report 21286008 (Version 1)
Quarter: 2022Q3

REPORT INFORMATION
  Report Type: Spontaneous
  Country: US (occurrence: None)
  Receive Date: 20220901
  Receipt Date: 20220901
  Transmission Date: 20221027
  Serious: Yes (Other)
  Sender: FDA-Public Use
  Company Number: None

PATIENT
  Age: 62 Year
  Sex: Male

DRUGS (1)
  1. REPATHA [Suspect]
     Active Substance: EVOLOCUMAB
     Dosage: FREQUENCY : TWICE A WEEK;?
     Route: 058
     Dates: end: 20220825

REACTIONS (3)
  - Injection site reaction [None]
  - Injection site swelling [None]
  - Injection site urticaria [None]

NARRATIVE: CASE EVENT DATE: 20220825
